FAERS Safety Report 8923656 (Version 1)
Quarter: 2012Q4

REPORT INFORMATION
  Report Type: Spontaneous
  Country: JP (occurrence: None)
  Receive Date: 20121109
  Receipt Date: 20121109
  Transmission Date: 20130627
  Serious: Yes (Hospitalization)
  Sender: FDA-Public Use
  Company Number: 2012S1000022

PATIENT
  Age: 83 Year
  Sex: Male

DRUGS (5)
  1. CUBICIN [Suspect]
     Indication: STAPHYLOCOCCAL INFECTION
     Route: 041
     Dates: start: 20120102, end: 20120106
  2. ZYVOX [Suspect]
     Indication: STAPHYLOCOCCAL INFECTION
     Route: 041
     Dates: start: 20111222, end: 20120101
  3. VANCOMYCIN [Concomitant]
  4. MODACIN [Concomitant]
  5. RIFAMPICIN [Concomitant]

REACTIONS (1)
  - Platelet count decreased [None]
